FAERS Safety Report 7399954-3 (Version None)
Quarter: 2011Q1

REPORT INFORMATION
  Report Type: 
  Country: None (occurrence: None)
  Receive Date: 20110330
  Receipt Date: 20110316
  Transmission Date: 20110831
  Serious: Yes (Other)
  Sender: FDA-Public Use
  Company Number: 2011SP004144

PATIENT
  Age: 52 Year
  Sex: Male

DRUGS (1)
  1. PEG-INTRON [Suspect]
     Indication: HEPATITIS
     Dosage: SC
     Route: 058

REACTIONS (5)
  - GLOSSITIS [None]
  - STOMATITIS [None]
  - APHTHOUS STOMATITIS [None]
  - CHAPPED LIPS [None]
  - HERPES SIMPLEX [None]
